FAERS Safety Report 5282161-8 (Version None)
Quarter: 2007Q1

REPORT INFORMATION
  Report Type: 
  Country: None (occurrence: None)
  Receive Date: 20070330
  Receipt Date: 20070320
  Transmission Date: 20070707
  Serious: Yes (Death)
  Sender: FDA-Public Use
  Company Number: HK-PFIZER INC-2007005106

PATIENT
  Sex: Male
  Weight: 58.7 kg

DRUGS (3)
  1. SU-011,248 [Suspect]
     Indication: METASTATIC RENAL CELL CARCINOMA
     Route: 048
     Dates: start: 20060608, end: 20061203
  2. VITAMIN CAP [Concomitant]
     Route: 048
     Dates: start: 20061113, end: 20061204
  3. FLUOCINOLONE ACETONIDE [Concomitant]
     Route: 061
     Dates: start: 20061113, end: 20061204

REACTIONS (3)
  - DISEASE PROGRESSION [None]
  - RENAL CELL CARCINOMA STAGE UNSPECIFIED [None]
  - SEPSIS [None]
